FAERS Safety Report 11423309 (Version 1)
Quarter: 2015Q3

REPORT INFORMATION
  Report Type: Spontaneous
  Country: US (occurrence: MY)
  Receive Date: 20150827
  Receipt Date: 20150827
  Transmission Date: 20151125
  Serious: Yes (Other)
  Sender: FDA-Public Use
  Company Number: US-PFIZER INC-2015285270

PATIENT
  Age: 73 Year
  Sex: Female
  Weight: 61 kg

DRUGS (3)
  1. CELEBREX [Suspect]
     Active Substance: CELECOXIB
     Indication: BACK PAIN
     Dosage: UNK
     Dates: start: 20150401, end: 20150805
  2. METFORMIN [Concomitant]
     Active Substance: METFORMIN HYDROCHLORIDE
     Indication: DIABETES MELLITUS
     Dosage: UNK (LOWER DOSE)
     Route: 048
  3. CELEBREX [Suspect]
     Active Substance: CELECOXIB
     Indication: ARTHRALGIA

REACTIONS (5)
  - Peripheral swelling [Recovering/Resolving]
  - Pain in extremity [Unknown]
  - Haemolytic anaemia [Not Recovered/Not Resolved]
  - Thrombocytosis [Recovered/Resolved]
  - Skin ulcer [Unknown]

NARRATIVE: CASE EVENT DATE: 2015
